FAERS Safety Report 6879915-0 (Version None)
Quarter: 2010Q3

REPORT INFORMATION
  Report Type: 
  Country: None (occurrence: None)
  Receive Date: 20100728
  Receipt Date: 20100719
  Transmission Date: 20110219
  Serious: Yes (Other)
  Sender: FDA-Public Use
  Company Number: US-CELGENEUS-163-20785-10071835

PATIENT
  Sex: Male

DRUGS (2)
  1. THALOMID [Suspect]
     Route: 048
     Dates: start: 20100101
  2. THALOMID [Suspect]
     Route: 048
     Dates: start: 20091201, end: 20100101

REACTIONS (1)
  - MALARIA [None]
